FAERS Safety Report 9738933 (Version 1)
Quarter: 2013Q4

REPORT INFORMATION
  Report Type: Spontaneous
  Country: BR (occurrence: BR)
  Receive Date: 20131209
  Receipt Date: 20131209
  Transmission Date: 20140711
  Serious: Yes (Other)
  Sender: FDA-Public Use
  Company Number: BR-JNJFOC-20131117564

PATIENT
  Sex: 0

DRUGS (4)
  1. RISPERIDONE [Suspect]
     Indication: PSYCHOTIC DISORDER
     Route: 065
  2. RISPERIDONE [Suspect]
     Indication: PSYCHOTIC DISORDER
     Route: 065
  3. RISPERIDONE [Suspect]
     Indication: PSYCHOTIC DISORDER
     Dosage: DIVIDED INTO TWO DOSES PER DAY OF 3 MG
     Route: 065
  4. RISPERIDONE [Suspect]
     Indication: PSYCHOTIC DISORDER
     Dosage: ABOVE 6 GM
     Route: 065

REACTIONS (6)
  - Waxy flexibility [Unknown]
  - Weight increased [Unknown]
  - Extrapyramidal disorder [Unknown]
  - Hypotension [Unknown]
  - Sedation [Unknown]
  - Blood prolactin increased [Unknown]
